FAERS Safety Report 5886715-7 (Version None)
Quarter: 2008Q3

REPORT INFORMATION
  Report Type: 
  Country: None (occurrence: None)
  Receive Date: 20080917
  Receipt Date: 20080912
  Transmission Date: 20090109
  Serious: Yes (Hospitalization)
  Sender: FDA-Public Use
  Company Number: PHEH2008US08213

PATIENT

DRUGS (1)
  1. EXJADE [Suspect]
     Dosage: UNK

REACTIONS (4)
  - AMMONIA INCREASED [None]
  - HEPATIC ENCEPHALOPATHY [None]
  - LIVER FUNCTION TEST ABNORMAL [None]
  - SERUM FERRITIN INCREASED [None]
